FAERS Safety Report 4809351-X (Version None)
Quarter: 2005Q4

REPORT INFORMATION
  Report Type: 
  Country: None (occurrence: None)
  Receive Date: 20051021
  Receipt Date: 20030107
  Transmission Date: 20060501
  Serious: No
  Sender: FDA-Public Use
  Company Number: USA030125707

PATIENT
  Age: 50 Year
  Sex: Male

DRUGS (2)
  1. ZYPREXA [Suspect]
     Indication: DELUSION
     Dosage: 5 MG/1 IN THE EVENING
     Dates: start: 20000428
  2. MELLARIL [Concomitant]

REACTIONS (2)
  - RED BLOOD CELLS SEMEN POSITIVE [None]
  - WEIGHT INCREASED [None]
